FAERS Safety Report 4831982-1 (Version None)
Quarter: 2005Q4

REPORT INFORMATION
  Report Type: 
  Country: None (occurrence: None)
  Receive Date: 20051118
  Receipt Date: 20051115
  Transmission Date: 20060501
  Serious: Yes (Death, Hospitalization)
  Sender: FDA-Public Use
  Company Number: GB-BRISTOL-MYERS SQUIBB COMPANY-13186374

PATIENT
  Age: 72 Year
  Sex: Male

DRUGS (3)
  1. CETUXIMAB [Suspect]
     Indication: COLORECTAL CANCER
     Route: 065
     Dates: start: 20051024, end: 20051024
  2. OXALIPLATIN [Suspect]
     Indication: COLORECTAL CANCER
     Route: 065
     Dates: start: 20051024, end: 20051024
  3. CAPECITABINE [Suspect]
     Indication: COLORECTAL CANCER
     Route: 065
     Dates: start: 20051024, end: 20051028

REACTIONS (2)
  - DIARRHOEA [None]
  - VOMITING [None]
